FAERS Safety Report 17185094 (Version 2)
Quarter: 2019Q4

REPORT INFORMATION
  Report Type: Spontaneous
  Country: US (occurrence: US)
  Receive Date: 20191220
  Receipt Date: 20191224
  Transmission Date: 20200122
  Serious: Yes (Hospitalization)
  Sender: FDA-Public Use
  Company Number: US-PFIZER INC-2019548676

PATIENT
  Sex: Male

DRUGS (2)
  1. DILANTIN [Suspect]
     Active Substance: PHENYTOIN
     Dosage: UNK
     Dates: start: 2004
  2. LEVAQUIN [Interacting]
     Active Substance: LEVOFLOXACIN
     Dosage: UNK
     Dates: start: 2018

REACTIONS (4)
  - Anticonvulsant drug level decreased [Unknown]
  - Drug interaction [Unknown]
  - Road traffic accident [Unknown]
  - Toothache [Unknown]
